FAERS Safety Report 9335144 (Version 1)
Quarter: 2013Q2

REPORT INFORMATION
  Report Type: Spontaneous
  Country: US (occurrence: US)
  Receive Date: 20130606
  Receipt Date: 20130606
  Transmission Date: 20140414
  Serious: Yes (Hospitalization)
  Sender: FDA-Public Use
  Company Number: US-PFIZER INC-2013170376

PATIENT
  Sex: Female

DRUGS (2)
  1. PRISTIQ [Suspect]
     Indication: DEPRESSION
     Dosage: 100 MG, 1X/DAY
     Route: 048
  2. PRISTIQ [Suspect]
     Indication: ANXIETY

REACTIONS (4)
  - Lung infection [Unknown]
  - Dehydration [Unknown]
  - Fatigue [Not Recovered/Not Resolved]
  - Off label use [Recovered/Resolved]
